FAERS Safety Report 5416816-9 (Version None)
Quarter: 2007Q3

REPORT INFORMATION
  Report Type: 
  Country: None (occurrence: None)
  Receive Date: 20070815
  Receipt Date: 20070815
  Transmission Date: 20080115
  Serious: Yes (Other)
  Sender: FDA-Public Use
  Company Number: None

PATIENT
  Age: 69 Year
  Sex: Female
  Weight: 48.9885 kg

DRUGS (1)
  1. LAMISIL [Suspect]
     Indication: ONYCHOMYCOSIS
     Dosage: 250 MG DAILY PO
     Route: 048
     Dates: start: 20070610, end: 20070704

REACTIONS (4)
  - AGEUSIA [None]
  - MALAISE [None]
  - ORAL INTAKE REDUCED [None]
  - WEIGHT DECREASED [None]
